FAERS Safety Report 6302445-1 (Version None)
Quarter: 2009Q3

REPORT INFORMATION
  Report Type: 
  Country: None (occurrence: None)
  Receive Date: 20090810
  Receipt Date: 20090803
  Transmission Date: 20100115
  Serious: Yes (Death, Other)
  Sender: FDA-Public Use
  Company Number: ES-ROCHE-647344

PATIENT
  Age: 56 Year
  Sex: Male

DRUGS (5)
  1. MYCOPHENOLATE MOFETIL [Suspect]
     Route: 065
     Dates: start: 20070401, end: 20070701
  2. TACROLIMUS [Interacting]
     Dosage: TROUGH LEVELS MAINTAINED AROUND 10-20 NG/ML
     Route: 065
     Dates: start: 20070401, end: 20070801
  3. METHYLPREDNISOLONE [Suspect]
     Dosage: DOSAGE REGIMEN: THREE 500 MG BOLUSES
     Route: 065
  4. RAPAMYCIN [Interacting]
     Route: 065
     Dates: start: 20070701, end: 20070801
  5. SIMVASTATIN [Interacting]
     Route: 065
     Dates: start: 20070701, end: 20070801

REACTIONS (11)
  - BLOOD CHOLESTEROL INCREASED [None]
  - BLOOD TRIGLYCERIDES INCREASED [None]
  - DEATH [None]
  - DRUG INTERACTION [None]
  - HYPERTENSION [None]
  - QUADRIPLEGIA [None]
  - RENAL FAILURE ACUTE [None]
  - RESPIRATORY FAILURE [None]
  - RHABDOMYOLYSIS [None]
  - TRANSPLANT REJECTION [None]
  - VENTRICULAR FIBRILLATION [None]
